FAERS Safety Report 4344987-4 (Version None)
Quarter: 2004Q2

REPORT INFORMATION
  Report Type: 
  Country: None (occurrence: None)
  Receive Date: 20040420
  Receipt Date: 20040402
  Transmission Date: 20050107
  Serious: Yes (Hospitalization)
  Sender: FDA-Public Use
  Company Number: US012973

PATIENT
  Age: 24 Month
  Sex: Male

DRUGS (1)
  1. ACTIQ [Suspect]
     Dosage: 300 UG ONCE BUCCAL
     Route: 002
     Dates: start: 20021101, end: 20021101

REACTIONS (6)
  - ACCIDENTAL EXPOSURE [None]
  - COMA [None]
  - PNEUMONIA ASPIRATION [None]
  - PYREXIA [None]
  - TACHYCARDIA [None]
  - VOMITING [None]
